FAERS Safety Report 26180579 (Version 1)
Quarter: 2025Q4

REPORT INFORMATION
  Report Type: Spontaneous
  Country: US (occurrence: None)
  Receive Date: 20251219
  Receipt Date: 20251219
  Transmission Date: 20260117
  Serious: Yes (Hospitalization)
  Sender: FDA-CTU
  Company Number: None

PATIENT
  Age: 59 Year
  Sex: Male

DRUGS (15)
  1. TALTZ [Suspect]
     Active Substance: IXEKIZUMAB
     Indication: Psoriasis
     Dosage: FREQUENCY : MONTHLY;
     Route: 058
     Dates: start: 20250909
  2. SPIRIVA 18MCG [Concomitant]
  3. LORATADINE 10MG TABLETS [Concomitant]
  4. METOPROLOL SUCCINATE [Concomitant]
     Active Substance: METOPROLOL SUCCINATE
  5. NITROGLYCERIN 0.4MG SUB TAB 25S [Concomitant]
  6. TRIAMCINOLONE 0.1% CREAM 30GM [Concomitant]
  7. ADVAIR DISKUS 250/50MCG (YELLOW) 60 [Concomitant]
  8. ATORVASTATIN CALCIUM [Concomitant]
     Active Substance: ATORVASTATIN CALCIUM
  9. CLOBETASOL PROP 0.05% CREAM 15GM [Concomitant]
  10. CLOBETASOL PROP 0.05% OINT 15GM [Concomitant]
  11. DILTIAZEM CD 180MG cap [Concomitant]
  12. ELIOUIS 5MG TABLETS [Concomitant]
  13. FLUTICASONE ALLERGY NASAL 50MCG SP [Concomitant]
  14. FUROSEMIDE [Concomitant]
     Active Substance: FUROSEMIDE
  15. ISOSORBIDE MONONITRATE 30MG ER TABS [Concomitant]

REACTIONS (3)
  - Rhinovirus infection [None]
  - Chronic obstructive pulmonary disease [None]
  - Therapy interrupted [None]

NARRATIVE: CASE EVENT DATE: 20251211
